FAERS Safety Report 4911792-7 (Version None)
Quarter: 2006Q1

REPORT INFORMATION
  Report Type: 
  Country: None (occurrence: None)
  Receive Date: 20060213
  Receipt Date: 20060213
  Transmission Date: 20060701
  Serious: Yes (Hospitalization, Other)
  Sender: FDA-Public Use
  Company Number: None

PATIENT
  Sex: Male
  Weight: 62.1 kg

DRUGS (3)
  1. FLUOROURACIL [Suspect]
     Indication: GASTRIC CANCER
     Dosage: 2050 MG
     Dates: start: 20060131
  2. CISPLATIN [Suspect]
     Dosage: 103 MG
     Dates: start: 20060130, end: 20060130
  3. EPIRUBICIN [Suspect]
     Dosage: 86 MG
     Dates: start: 20060130, end: 20060130

REACTIONS (4)
  - ARTERIAL THROMBOSIS LIMB [None]
  - DEEP VEIN THROMBOSIS [None]
  - SUPERIOR VENA CAVAL OCCLUSION [None]
  - VENOUS OCCLUSION [None]
